FAERS Safety Report 15568044 (Version 2)
Quarter: 2018Q4

REPORT INFORMATION
  Report Type: Spontaneous
  Country: US (occurrence: US)
  Receive Date: 20181030
  Receipt Date: 20181105
  Transmission Date: 20190205
  Serious: Yes (Other)
  Sender: FDA-Public Use
  Company Number: US-ALLERGAN-1849376US

PATIENT
  Age: 66 Year
  Sex: Female

DRUGS (7)
  1. REFRESH OPTIVE ADVANCED [Concomitant]
     Active Substance: CARBOXYMETHYLCELLULOSE SODIUM\GLYCERIN\POLYSORBATE 80
     Dosage: UNK
  2. REFRESH LACRI-LUBE [Suspect]
     Active Substance: MINERAL OIL\PETROLATUM
     Indication: DRY EYE
     Dosage: HALF OF THAT AMOUNT, QHS
     Route: 047
     Dates: start: 201810
  3. PRO-OMEGA PRODUCT [Concomitant]
     Dosage: UNK
  4. REFRESH TEARS [Suspect]
     Active Substance: CARBOXYMETHYLCELLULOSE SODIUM
     Indication: DRY EYE
     Dosage: UNK
     Route: 047
  5. REFRESH LACRI-LUBE [Suspect]
     Active Substance: MINERAL OIL\PETROLATUM
     Dosage: 1/4 INCH PER EYE, QHS
     Route: 047
     Dates: start: 20181020
  6. ACTONEL [Concomitant]
     Active Substance: RISEDRONATE SODIUM
     Dosage: UNK
  7. ASPIRIN. [Concomitant]
     Active Substance: ASPIRIN
     Dosage: 81 MG, UNK

REACTIONS (6)
  - Headache [Unknown]
  - Product residue present [Unknown]
  - Basal cell carcinoma [Recovering/Resolving]
  - Product use complaint [Unknown]
  - Accidental exposure to product [Unknown]
  - Intentional product misuse [Unknown]
